FAERS Safety Report 6558001-3 (Version None)
Quarter: 2010Q1

REPORT INFORMATION
  Report Type: 
  Country: None (occurrence: None)
  Receive Date: 20100127
  Receipt Date: 20100127
  Transmission Date: 20100710
  Serious: Yes (Death)
  Sender: FDA-Public Use
  Company Number: None

PATIENT
  Sex: Female

DRUGS (1)
  1. MEDTRONIC QUICK-SET INFUSION SET RECALL [Suspect]

REACTIONS (4)
  - DEVICE FAILURE [None]
  - DIABETIC KETOACIDOSIS [None]
  - INCORRECT DOSE ADMINISTERED [None]
  - PRODUCT QUALITY ISSUE [None]
